FAERS Safety Report 7529109-0 (Version None)
Quarter: 2011Q2

REPORT INFORMATION
  Report Type: 
  Country: None (occurrence: None)
  Receive Date: 20110607
  Receipt Date: 20110531
  Transmission Date: 20111010
  Serious: Yes (Hospitalization)
  Sender: FDA-Public Use
  Company Number: GB-SANOFI-AVENTIS-2011SA034420

PATIENT
  Age: 68 Year
  Sex: Male
  Weight: 108.4 kg

DRUGS (10)
  1. DOCETAXEL [Suspect]
     Route: 041
     Dates: start: 20110419, end: 20110419
  2. INVESTIGATIONAL DRUG [Suspect]
     Indication: NON-SMALL CELL LUNG CANCER
     Dosage: LOADING DOSE ON DAYS -7, -6, -5 (CYDE 1 ONLY), THEN WEEKLY ON DAYS 1, 8, 15 OF 21DAY CYCLE
     Route: 042
     Dates: start: 20110322, end: 20110329
  3. CODEINE SULFATE [Concomitant]
     Dates: start: 20110401
  4. INVESTIGATIONAL DRUG [Suspect]
     Dosage: LOADING DOSE ON DAYS -7, -6, -5 (CYDE 1 ONLY), THEN WEEKLY ON DAYS 1, 8, 15 OF 21DAY CYCLE
     Route: 042
     Dates: start: 20110419
  5. LANSOPRAZOLE [Concomitant]
  6. ASPIRIN [Concomitant]
  7. DOCETAXEL [Suspect]
     Indication: NON-SMALL CELL LUNG CANCER
     Route: 041
     Dates: start: 20110329, end: 20110329
  8. TRAMADOL HCL [Concomitant]
     Dates: start: 20110402
  9. SIMVASTATIN [Concomitant]
     Dates: end: 20110406
  10. CANDESARTAN CILEXETIL [Concomitant]

REACTIONS (4)
  - NEUTROPENIA [None]
  - HYPOMAGNESAEMIA [None]
  - FALL [None]
  - NEUTROPENIC SEPSIS [None]
